FAERS Safety Report 11863923 (Version 1)
Quarter: 2015Q4

REPORT INFORMATION
  Report Type: Spontaneous
  Country: GR (occurrence: GR)
  Receive Date: 20151223
  Receipt Date: 20151223
  Transmission Date: 20160305
  Serious: Yes (Hospitalization)
  Sender: FDA-Public Use
  Company Number: GR-EMD SERONO-8059934

PATIENT
  Age: 38 Year
  Sex: Female

DRUGS (1)
  1. REBIF [Suspect]
     Active Substance: INTERFERON BETA-1A
     Indication: MULTIPLE SCLEROSIS
     Route: 058
     Dates: start: 2013

REACTIONS (1)
  - Pulmonary hypertension [Recovering/Resolving]

NARRATIVE: CASE EVENT DATE: 201512
